FAERS Safety Report 8162344-X (Version None)
Quarter: 2012Q1

REPORT INFORMATION
  Report Type: 
  Country: None (occurrence: None)
  Receive Date: 20120224
  Receipt Date: 20120216
  Transmission Date: 20120608
  Serious: Yes (Death, Hospitalization, Other)
  Sender: FDA-Public Use
  Company Number: US-BAYER-200940580NA

PATIENT
  Age: 55 Year
  Sex: Male
  Weight: 73 kg

DRUGS (16)
  1. LEVOPHED [Concomitant]
     Dosage: UNK
     Route: 042
     Dates: start: 20070216
  2. PROTAMINE SULFATE [Concomitant]
     Dosage: 50 MG, UNK
     Route: 042
     Dates: start: 20070216
  3. PHENYLEPHRINE HCL [Concomitant]
     Dosage: UNK
     Route: 042
     Dates: start: 20070216
  4. AMIODARONE HCL [Concomitant]
  5. EPINEPHRINE [Concomitant]
     Dosage: UNK
     Route: 042
     Dates: start: 20070216
  6. PLASMA [Concomitant]
     Dosage: 4 U, UNK
  7. NITROGLYCERIN [Concomitant]
     Dosage: UNK
     Route: 042
     Dates: start: 20070216
  8. RED BLOOD CELLS [Concomitant]
     Dosage: 600 ML, UNK
     Dates: start: 20070216
  9. HEPARIN [Concomitant]
     Dosage: 65000 U, UNK
     Route: 042
     Dates: start: 20070216
  10. PLATELETS [Concomitant]
     Dosage: 2 U, UNK
  11. TRASYLOL [Suspect]
     Indication: AORTIC VALVE REPLACEMENT
     Dosage: 50CC/HOUR; 300CC PER PERFUSION
     Route: 042
     Dates: start: 20070216, end: 20070216
  12. LASIX [Concomitant]
     Dosage: 40 MG, UNK
     Route: 042
     Dates: start: 20070216
  13. DOPAMINE HYDROCHLORIDE [Concomitant]
     Dosage: UNK
     Route: 042
     Dates: start: 20070216
  14. TRASYLOL [Suspect]
     Indication: AORTIC SURGERY
  15. AMIODARONE HCL [Concomitant]
     Dosage: UNK
     Route: 042
     Dates: start: 20070216
  16. INSULIN [Concomitant]
     Dosage: UNK
     Route: 042
     Dates: start: 20070216

REACTIONS (13)
  - RENAL IMPAIRMENT [None]
  - RENAL INJURY [None]
  - ANXIETY [None]
  - STRESS [None]
  - DEATH [None]
  - MULTI-ORGAN FAILURE [None]
  - UNEVALUABLE EVENT [None]
  - FEAR [None]
  - PAIN [None]
  - INJURY [None]
  - EMOTIONAL DISTRESS [None]
  - ANHEDONIA [None]
  - RENAL FAILURE [None]
